FAERS Safety Report 15324466 (Version 1)
Quarter: 2018Q4

REPORT INFORMATION
  Report Type: Spontaneous
  Country: FR (occurrence: FR)
  Receive Date: 20180828
  Receipt Date: 20180828
  Transmission Date: 20190204
  Serious: Yes (Hospitalization)
  Sender: FDA-Public Use
  Company Number: FR-TEVA-2018-FR-947505

PATIENT
  Age: 60 Year
  Sex: Female
  Weight: 64.5 kg

DRUGS (3)
  1. CELECTOL [Suspect]
     Active Substance: CELIPROLOL HYDROCHLORIDE
     Dosage: 1 DOSAGE FORMS DAILY;
     Route: 048
     Dates: end: 20180411
  2. FLECAINIDE (ACETATE DE) [Concomitant]
     Active Substance: FLECAINIDE
     Route: 065
  3. CITALOPRAM [Suspect]
     Active Substance: CITALOPRAM HYDROBROMIDE
     Dosage: 1 DOSAGE FORMS DAILY;  TABLET COATED SCORED
     Route: 048
     Dates: end: 20180411

REACTIONS (3)
  - Sinus bradycardia [Recovered/Resolved]
  - Syncope [Recovered/Resolved]
  - Sinus node dysfunction [Recovered/Resolved]

NARRATIVE: CASE EVENT DATE: 20180408
